FAERS Safety Report 24201313 (Version 2)
Quarter: 2024Q3

REPORT INFORMATION
  Report Type: Report from Study
  Country: AR (occurrence: AR)
  Receive Date: 20240812
  Receipt Date: 20240830
  Transmission Date: 20241017
  Serious: Yes (Other)
  Sender: NOVARTIS
  Company Number: AR-002147023-NVSC2023AR046435

PATIENT
  Age: 80 Year
  Sex: Female

DRUGS (2)
  1. KISQALI [Suspect]
     Active Substance: RIBOCICLIB
     Indication: Breast cancer metastatic
     Dosage: 600 MG, QD
     Route: 048
     Dates: start: 20220718
  2. LETROZOLE [Suspect]
     Active Substance: LETROZOLE
     Indication: Breast cancer metastatic
     Dosage: 2.5 MG, QD
     Route: 048
     Dates: start: 20220718

REACTIONS (10)
  - Metastases to lung [Unknown]
  - Upper limb fracture [Unknown]
  - Movement disorder [Unknown]
  - Crying [Unknown]
  - Nervousness [Unknown]
  - Fall [Unknown]
  - Cognitive disorder [Unknown]
  - Pain [Unknown]
  - Neoplasm [Unknown]
  - Red blood cell count decreased [Unknown]

NARRATIVE: CASE EVENT DATE: 20230217
